FAERS Safety Report 9029129 (Version 1)
Quarter: 2013Q1

REPORT INFORMATION
  Report Type: Spontaneous
  Country: US (occurrence: US)
  Receive Date: 20130124
  Receipt Date: 20130124
  Transmission Date: 20140127
  Serious: No
  Sender: FDA-Public Use
  Company Number: US-ASTRAZENECA-2013SE03600

PATIENT
  Age: 71 Year
  Sex: Female
  Weight: 83.9 kg

DRUGS (1)
  1. NEXIUM [Suspect]
     Indication: GASTROOESOPHAGEAL REFLUX DISEASE
     Route: 048
     Dates: start: 20130114

REACTIONS (3)
  - Faeces discoloured [Unknown]
  - Chest discomfort [Unknown]
  - Intentional drug misuse [Unknown]
